FAERS Safety Report 20874581 (Version 4)
Quarter: 2022Q2

REPORT INFORMATION
  Report Type: Spontaneous
  Country: US (occurrence: US)
  Receive Date: 20220525
  Receipt Date: 20220629
  Transmission Date: 20220720
  Serious: Yes (Death, Hospitalization)
  Sender: FDA-Public Use
  Company Number: US-BIOGEN-2022BI01125138

PATIENT
  Age: 53 Year
  Sex: Male
  Weight: 89.4 kg

DRUGS (30)
  1. TYSABRI [Suspect]
     Active Substance: NATALIZUMAB
     Indication: Relapsing-remitting multiple sclerosis
     Route: 065
     Dates: start: 20130325
  2. TYSABRI [Suspect]
     Active Substance: NATALIZUMAB
     Dates: start: 20210105
  3. TYSABRI [Suspect]
     Active Substance: NATALIZUMAB
     Dates: start: 20210202
  4. TYSABRI [Suspect]
     Active Substance: NATALIZUMAB
     Dates: start: 20210302
  5. TYSABRI [Suspect]
     Active Substance: NATALIZUMAB
     Dates: start: 20210330
  6. TYSABRI [Suspect]
     Active Substance: NATALIZUMAB
     Dates: start: 20210427
  7. TYSABRI [Suspect]
     Active Substance: NATALIZUMAB
     Dates: start: 20210525
  8. TYSABRI [Suspect]
     Active Substance: NATALIZUMAB
     Dates: start: 20210622
  9. TYSABRI [Suspect]
     Active Substance: NATALIZUMAB
     Dates: start: 20210726
  10. TYSABRI [Suspect]
     Active Substance: NATALIZUMAB
     Dates: start: 20210824
  11. TYSABRI [Suspect]
     Active Substance: NATALIZUMAB
     Dates: start: 20210921
  12. TYSABRI [Suspect]
     Active Substance: NATALIZUMAB
     Dates: start: 20211019
  13. TYSABRI [Suspect]
     Active Substance: NATALIZUMAB
     Dates: start: 20211117
  14. TYSABRI [Suspect]
     Active Substance: NATALIZUMAB
     Dates: start: 20211217
  15. TYSABRI [Suspect]
     Active Substance: NATALIZUMAB
     Dates: start: 20220119
  16. TYSABRI [Suspect]
     Active Substance: NATALIZUMAB
     Dates: start: 20220216
  17. TYSABRI [Suspect]
     Active Substance: NATALIZUMAB
     Dates: start: 20220316
  18. TYSABRI [Suspect]
     Active Substance: NATALIZUMAB
     Dates: start: 20220415
  19. VIAGRA [Concomitant]
     Active Substance: SILDENAFIL CITRATE
     Indication: Erectile dysfunction
     Dosage: PRN
     Route: 048
  20. ZYRTEC [Concomitant]
     Active Substance: CETIRIZINE HYDROCHLORIDE
     Indication: Product used for unknown indication
     Route: 065
  21. VITAMIN D [Concomitant]
     Active Substance: VITAMIN D NOS
     Indication: Product used for unknown indication
     Route: 048
  22. ASCORBIC ACID [Concomitant]
     Active Substance: ASCORBIC ACID
     Indication: Product used for unknown indication
     Dosage: 1 TABLET BY MOUTH EVERY MORNING
     Route: 048
  23. ASPIRIN [Concomitant]
     Active Substance: ASPIRIN
     Indication: Product used for unknown indication
     Dosage: 1 TABLET BY MOUTH EVERY MORNING
     Route: 048
     Dates: start: 20190922
  24. BIOTIN [Concomitant]
     Active Substance: BIOTIN
     Indication: Product used for unknown indication
     Dosage: 1 TABLET BY MOUTH DAILY
     Route: 048
  25. CALCIUM [Concomitant]
     Active Substance: CALCIUM
     Indication: Product used for unknown indication
     Route: 048
  26. VITAMIN B12 [Concomitant]
     Active Substance: CYANOCOBALAMIN
     Indication: Product used for unknown indication
     Dosage: 1 TABLET BY MOUTH DAILY
     Route: 048
  27. FERROUS SULFATE [Concomitant]
     Active Substance: FERROUS SULFATE
     Indication: Product used for unknown indication
     Route: 048
  28. Fish oil-omega 3 fatty acids [Concomitant]
     Indication: Product used for unknown indication
     Route: 048
  29. PROTONIX [Concomitant]
     Active Substance: PANTOPRAZOLE SODIUM
     Indication: Product used for unknown indication
     Dosage: 40 MG BY MOUTH BID
     Route: 048
  30. TYLENOL [Concomitant]
     Active Substance: ACETAMINOPHEN
     Indication: Headache
     Route: 065

REACTIONS (2)
  - Creutzfeldt-Jakob disease [Fatal]
  - Cardio-respiratory arrest [Fatal]

NARRATIVE: CASE EVENT DATE: 20220301
